FAERS Safety Report 21959832 (Version 3)
Quarter: 2023Q2

REPORT INFORMATION
  Report Type: Report from Study
  Country: BR (occurrence: BR)
  Receive Date: 20230206
  Receipt Date: 20230417
  Transmission Date: 20230722
  Serious: Yes (Hospitalization)
  Sender: FDA-Public Use
  Company Number: BR-002147023-NVSC2023BR024117

PATIENT

DRUGS (2)
  1. RUXOLITINIB [Suspect]
     Active Substance: RUXOLITINIB
     Indication: Bone cancer
     Dosage: 1 DOSAGE FORM, QOD (3 YEARS AGO)
     Route: 048
  2. RUXOLITINIB [Suspect]
     Active Substance: RUXOLITINIB
     Indication: Myelofibrosis

REACTIONS (5)
  - COVID-19 [Not Recovered/Not Resolved]
  - Drug ineffective [Recovered/Resolved]
  - Liver disorder [Not Recovered/Not Resolved]
  - Infection reactivation [Recovered/Resolved]
  - Fatigue [Not Recovered/Not Resolved]
